FAERS Safety Report 17453796 (Version 1)
Quarter: 2020Q1

REPORT INFORMATION
  Report Type: Spontaneous
  Country: US (occurrence: US)
  Receive Date: 20200224
  Receipt Date: 20200224
  Transmission Date: 20200409
  Serious: No
  Sender: FDA-Public Use
  Company Number: US-ARRAY-2020-07381

PATIENT

DRUGS (2)
  1. MEKTOVI [Suspect]
     Active Substance: BINIMETINIB
     Indication: BREAST NEOPLASM
     Dosage: 30 MG, BID
     Route: 048
     Dates: start: 20181130
  2. BRAFTOVI [Suspect]
     Active Substance: ENCORAFENIB
     Indication: BREAST NEOPLASM
     Dosage: 300 MG, QD
     Route: 048
     Dates: start: 20181130

REACTIONS (2)
  - Alopecia [Unknown]
  - Product use in unapproved indication [Unknown]

NARRATIVE: CASE EVENT DATE: 20181130
